FAERS Safety Report 20154976 (Version 1)
Quarter: 2021Q4

REPORT INFORMATION
  Report Type: Spontaneous
  Country: US (occurrence: None)
  Receive Date: 20211206
  Receipt Date: 20211206
  Transmission Date: 20220303
  Serious: No
  Sender: FDA-Public Use
  Company Number: None

PATIENT
  Age: 54 Year
  Sex: Female
  Weight: 192.78 kg

DRUGS (3)
  1. ENBREL [Suspect]
     Active Substance: ETANERCEPT
     Indication: Arthropathy
     Dosage: FREQUENCY : WEEKLY;?
     Route: 058
     Dates: start: 202103
  2. ENBREL [Suspect]
     Active Substance: ETANERCEPT
     Indication: Pain
  3. ENBREL [Suspect]
     Active Substance: ETANERCEPT
     Indication: Back pain

REACTIONS (1)
  - Nasopharyngitis [None]
